FAERS Safety Report 25417436 (Version 1)
Quarter: 2025Q2

REPORT INFORMATION
  Report Type: Spontaneous
  Country: ES (occurrence: ES)
  Receive Date: 20250610
  Receipt Date: 20250610
  Transmission Date: 20250716
  Serious: Yes (Other)
  Sender: Long Grove Pharmaceuticals
  Company Number: ES-Long Grove-000113

PATIENT
  Age: 54 Year
  Sex: Female

DRUGS (1)
  1. ERIBULIN MESYLATE [Suspect]
     Active Substance: ERIBULIN MESYLATE
     Indication: Breast cancer metastatic

REACTIONS (1)
  - Pulmonary toxicity [Recovered/Resolved]
